FAERS Safety Report 20987098 (Version 1)
Quarter: 2022Q2

REPORT INFORMATION
  Report Type: Spontaneous
  Country: FR (occurrence: FR)
  Receive Date: 20220621
  Receipt Date: 20220621
  Transmission Date: 20220720
  Serious: Yes (Other)
  Sender: FDA-Public Use
  Company Number: FR-DENTSPLY-2022SCDP000164

PATIENT
  Age: 13 Year
  Sex: Female
  Weight: 35.2 kg

DRUGS (3)
  1. LIDOCAINE\PRILOCAINE [Suspect]
     Active Substance: LIDOCAINE\PRILOCAINE
     Indication: Pain prophylaxis
     Dosage: UNK EMLA CREAM
     Route: 065
  2. NITROUS OXIDE [Suspect]
     Active Substance: NITROUS OXIDE
     Indication: Pain prophylaxis
     Dosage: UNK
  3. DYSPORT [Suspect]
     Active Substance: ABOBOTULINUMTOXINA
     Indication: Muscle spasticity
     Dosage: UNK 1 CYCLE OF DYSPORT POWDER FOR SOLUTION FOR INJECTION
     Route: 030
     Dates: start: 20120615, end: 20120615

REACTIONS (4)
  - Paraesthesia [Unknown]
  - Oropharyngeal discomfort [Unknown]
  - Angioedema [Unknown]
  - Urticaria [Recovered/Resolved]

NARRATIVE: CASE EVENT DATE: 20210517
